FAERS Safety Report 11167130 (Version 2)
Quarter: 2015Q2

REPORT INFORMATION
  Report Type: Spontaneous
  Country: CA (occurrence: None)
  Receive Date: 20150603
  Receipt Date: 20150625
  Transmission Date: 20150821
  Serious: Yes (Other)
  Sender: FDA-Public Use
  Company Number: ADR-2015-01061

PATIENT
  Sex: Female

DRUGS (4)
  1. BUPIVACAINE INTRATHECAL [Suspect]
     Active Substance: BUPIVACAINE
  2. CLONIDINE INTRATHECAL 250 MCG/ML [Suspect]
     Active Substance: CLONIDINE
  3. FENTANYL INTRATHECAL [Suspect]
     Active Substance: FENTANYL
  4. BACLOFEN INTRATHECAL [Suspect]
     Active Substance: BACLOFEN

REACTIONS (7)
  - Unresponsive to stimuli [None]
  - Post procedural complication [None]
  - Sedation [None]
  - Movement disorder [None]
  - Pain [None]
  - Nervous system disorder [None]
  - Agitation [None]

NARRATIVE: CASE EVENT DATE: 20150526
